FAERS Safety Report 7620955-1 (Version None)
Quarter: 2011Q3

REPORT INFORMATION
  Report Type: 
  Country: None (occurrence: None)
  Receive Date: 20110719
  Receipt Date: 20110708
  Transmission Date: 20111222
  Serious: Yes (Life-Threatening, Hospitalization, Disabling, Other)
  Sender: FDA-Public Use
  Company Number: US-MERCK-1106USA01581

PATIENT
  Age: 78 Year
  Sex: Male

DRUGS (6)
  1. TOPROL-XL [Concomitant]
     Route: 065
  2. ZOCOR [Suspect]
     Dosage: STENT PLACEMENT
     Route: 048
     Dates: end: 20110401
  3. ZOCOR [Suspect]
     Route: 048
     Dates: start: 20110401, end: 20110513
  4. SYNTHROID [Concomitant]
     Route: 065
  5. HYDROCHLOROTHIAZIDE [Concomitant]
     Route: 065
  6. LISINOPRIL [Concomitant]
     Route: 065

REACTIONS (4)
  - RHABDOMYOLYSIS [None]
  - GASTROINTESTINAL HAEMORRHAGE [None]
  - CARDIAC DISORDER [None]
  - HELICOBACTER GASTRITIS [None]
